FAERS Safety Report 23021788 (Version 1)
Quarter: 2023Q4

REPORT INFORMATION
  Report Type: Spontaneous
  Country: US (occurrence: None)
  Receive Date: 20231003
  Receipt Date: 20231003
  Transmission Date: 20240110
  Serious: Yes (Hospitalization, Other)
  Sender: FDA-Public Use
  Company Number: 2023A222674

PATIENT
  Age: 16754 Day
  Sex: Female
  Weight: 123.4 kg

DRUGS (12)
  1. SAPHNELO [Suspect]
     Active Substance: ANIFROLUMAB-FNIA
     Indication: Systemic lupus erythematosus
     Route: 042
     Dates: start: 20220802
  2. PROTONIX [Concomitant]
     Active Substance: PANTOPRAZOLE SODIUM
     Dosage: UNKNOWN
  3. THERA D [Concomitant]
     Dosage: UNKNOWN
  4. FOLINIC PLUS [Concomitant]
     Dosage: UNKNOWN
  5. BIOTIN [Concomitant]
     Active Substance: BIOTIN
     Dosage: UNKNOWN
  6. IMITREX [Concomitant]
     Active Substance: SUMATRIPTAN SUCCINATE
     Dosage: UNKNOWN
  7. SUCRALFATE [Concomitant]
     Active Substance: SUCRALFATE
     Dosage: UNKNOWN
  8. VALTEX [Concomitant]
     Dosage: UNKNOWN
  9. HYDROXYCHLOROQUINE [Concomitant]
     Active Substance: HYDROXYCHLOROQUINE
     Dosage: UNKNOWN
  10. MELATONIN [Concomitant]
     Active Substance: MELATONIN
     Dosage: UNKNOWN
  11. PEPCID [Concomitant]
     Active Substance: FAMOTIDINE
     Dosage: UNKNOWN
  12. CHLORTHALIDONE [Concomitant]
     Active Substance: CHLORTHALIDONE
     Dosage: UNKNOWN

REACTIONS (1)
  - Pneumonia [Not Recovered/Not Resolved]

NARRATIVE: CASE EVENT DATE: 20230606
